FAERS Safety Report 9253930 (Version 1)
Quarter: 2013Q2

REPORT INFORMATION
  Report Type: Spontaneous
  Country: IT (occurrence: None)
  Receive Date: 20130422
  Receipt Date: 20130422
  Transmission Date: 20140414
  Serious: Yes (Hospitalization)
  Sender: FDA-Public Use
  Company Number: FK201301235

PATIENT
  Age: 57 Year
  Sex: Female

DRUGS (3)
  1. OXALIPLATIN (MANUFACTURER UNKNOWN) (OXALIPLATIN) (OXALIPLATIN) [Suspect]
     Indication: RECTAL CANCER
     Route: 042
     Dates: start: 20111114, end: 20130403
  2. IRINOTECAN HYDROCHLORIDE TRIHYDRATE (IRINOTECAN HYDROCHLORIDE) [Concomitant]
  3. BEVACIZUMAB (BEVACIZUMAB) [Concomitant]

REACTIONS (2)
  - Application site pain [None]
  - Paraesthesia [None]
